FAERS Safety Report 5093626-6 (Version None)
Quarter: 2006Q3

REPORT INFORMATION
  Report Type: 
  Country: None (occurrence: None)
  Receive Date: 20060829
  Receipt Date: 20060817
  Transmission Date: 20061208
  Serious: Yes (Other)
  Sender: FDA-Public Use
  Company Number: 228922

PATIENT
  Sex: Male

DRUGS (1)
  1. AVASTIN [Suspect]
     Indication: RASH MACULAR
     Dosage: 1/MONTH, INTRAVITREAL
     Route: 031

REACTIONS (1)
  - VISUAL ACUITY REDUCED [None]
